FAERS Safety Report 9158836 (Version 1)
Quarter: 2013Q1

REPORT INFORMATION
  Report Type: Spontaneous
  Country: CO (occurrence: CO)
  Receive Date: 20130313
  Receipt Date: 20130313
  Transmission Date: 20140127
  Serious: Yes (Hospitalization)
  Sender: FDA-Public Use
  Company Number: CO-AMGEN-COLSP2013016364

PATIENT
  Sex: Female

DRUGS (1)
  1. NEULASTIM [Suspect]
     Indication: PROPHYLAXIS
     Dosage: 6 MG, 1 IN 21 DAYS
     Route: 058

REACTIONS (2)
  - Thrombocytopenia [Recovered/Resolved]
  - Gastroenteritis bacterial [Recovered/Resolved]
